FAERS Safety Report 7018812-7 (Version None)
Quarter: 2010Q3

REPORT INFORMATION
  Report Type: 
  Country: None (occurrence: None)
  Receive Date: 20100928
  Receipt Date: 20100916
  Transmission Date: 20110219
  Serious: Yes (Other)
  Sender: FDA-Public Use
  Company Number: FR-PFIZER INC-2010117167

PATIENT
  Sex: Male

DRUGS (2)
  1. GENOTONORM [Suspect]
     Dosage: 0.3
     Dates: start: 20100701
  2. GENOTONORM [Suspect]
     Dosage: 0.2

REACTIONS (4)
  - ARTHRALGIA [None]
  - CARDIAC DISORDER [None]
  - MUSCULAR WEAKNESS [None]
  - MYDRIASIS [None]
